FAERS Safety Report 7758679-2 (Version None)
Quarter: 2011Q3

REPORT INFORMATION
  Report Type: 
  Country: None (occurrence: None)
  Receive Date: 20110919
  Receipt Date: 20110906
  Transmission Date: 20111222
  Serious: Yes (Other)
  Sender: FDA-Public Use
  Company Number: BR-US-EMD SERONO, INC.-7082858

PATIENT
  Sex: Female

DRUGS (3)
  1. AMYTRIL (AMITRIPTYLINE HYDROCHLORIDE) [Concomitant]
  2. AZATHIOPRINE [Concomitant]
  3. REBIF [Suspect]
     Indication: RELAPSING-REMITTING MULTIPLE SCLEROSIS
     Dates: start: 20030706

REACTIONS (1)
  - PNEUMONIA [None]
